FAERS Safety Report 7729067-X (Version None)
Quarter: 2011Q3

REPORT INFORMATION
  Report Type: 
  Country: None (occurrence: None)
  Receive Date: 20110906
  Receipt Date: 20110818
  Transmission Date: 20111222
  Serious: No
  Sender: FDA-Public Use
  Company Number: US-ROXANE LABORATORIES, INC.-2011-RO-00989RO

PATIENT
  Age: 62 Year
  Sex: Female

DRUGS (2)
  1. MORPHINE [Suspect]
     Indication: PAIN
     Route: 048
     Dates: start: 20110101
  2. FENTANYL-100 [Concomitant]
     Indication: PAIN
     Route: 062

REACTIONS (1)
  - DRUG INEFFECTIVE [None]
